FAERS Safety Report 24298745 (Version 1)
Quarter: 2024Q3

REPORT INFORMATION
  Report Type: Spontaneous
  Country: AT (occurrence: AT)
  Receive Date: 20240909
  Receipt Date: 20240909
  Transmission Date: 20241016
  Serious: Yes (Hospitalization)
  Sender: ROVIPHARM SAS
  Company Number: AT-ROVI-20240867

PATIENT
  Sex: Male

DRUGS (3)
  1. RISPERIDONE [Suspect]
     Active Substance: RISPERIDONE
     Indication: Product used for unknown indication
  2. RISPERIDONE [Concomitant]
     Active Substance: RISPERIDONE
     Indication: Product used for unknown indication
  3. CARIPRAZINE [Concomitant]
     Active Substance: CARIPRAZINE
     Indication: Negative symptoms in schizophrenia

REACTIONS (5)
  - Schizophrenia [Unknown]
  - Product preparation error [Unknown]
  - Product leakage [Unknown]
  - Inappropriate schedule of product administration [Unknown]
  - Intentional product misuse [Unknown]
